FAERS Safety Report 25364723 (Version 1)
Quarter: 2025Q2

REPORT INFORMATION
  Report Type: Spontaneous
  Country: US (occurrence: None)
  Receive Date: 20250527
  Receipt Date: 20250527
  Transmission Date: 20250716
  Serious: Yes (Hospitalization, Disabling)
  Sender: FDA-CTU
  Company Number: None

PATIENT
  Age: 29 Year
  Sex: Female
  Weight: 72 kg

DRUGS (4)
  1. SERTRALINE [Suspect]
     Active Substance: SERTRALINE HYDROCHLORIDE
     Indication: Anxiety
  2. SERTRALINE [Suspect]
     Active Substance: SERTRALINE HYDROCHLORIDE
     Indication: Depression
  3. Omeg 3 [Concomitant]
  4. ultra vitamin [Concomitant]

REACTIONS (12)
  - Fatigue [None]
  - Lethargy [None]
  - Visual impairment [None]
  - Insomnia [None]
  - Anxiety [None]
  - Hypersensitivity [None]
  - Food allergy [None]
  - Tachycardia [None]
  - Presyncope [None]
  - Tremor [None]
  - Confusional state [None]
  - Withdrawal syndrome [None]

NARRATIVE: CASE EVENT DATE: 20241117
